FAERS Safety Report 7150938-X (Version None)
Quarter: 2010Q4

REPORT INFORMATION
  Report Type: 
  Country: None (occurrence: None)
  Receive Date: 20101210
  Receipt Date: 20101129
  Transmission Date: 20110411
  Serious: Yes (Congenital Anomaly)
  Sender: FDA-Public Use
  Company Number: A0680357A

PATIENT
  Sex: Male

DRUGS (9)
  1. PAXIL [Suspect]
     Indication: DEPRESSION
     Dosage: 20MG PER DAY
     Dates: start: 20021001, end: 20030701
  2. PAROXETINE HCL [Suspect]
     Indication: DEPRESSION
     Dosage: 20MG PER DAY
     Dates: start: 20030701, end: 20050301
  3. PRENATAL VITAMINS [Concomitant]
  4. AMPICILLIN [Concomitant]
  5. KEFLEX [Concomitant]
  6. ZANTAC [Concomitant]
  7. POLYMYXIN [Concomitant]
  8. NEOMYCIN [Concomitant]
  9. KETOCONAZOLE [Concomitant]
     Indication: RASH

REACTIONS (8)
  - ATRIAL SEPTAL DEFECT [None]
  - CARDIAC MURMUR [None]
  - CONGENITAL ANOMALY [None]
  - CYST [None]
  - DRUG EXPOSURE DURING PREGNANCY [None]
  - PULMONARY VALVE STENOSIS CONGENITAL [None]
  - SUPRAVENTRICULAR EXTRASYSTOLES [None]
  - TALIPES [None]
